FAERS Safety Report 13615736 (Version 1)
Quarter: 2017Q2

REPORT INFORMATION
  Report Type: Spontaneous
  Country: US (occurrence: US)
  Receive Date: 20170605
  Receipt Date: 20170605
  Transmission Date: 20170830
  Serious: Yes (Hospitalization)
  Sender: FDA-Public Use
  Company Number: None

PATIENT
  Age: 42 Year
  Sex: Male
  Weight: 125.42 kg

DRUGS (2)
  1. NAPROXEN. [Suspect]
     Active Substance: NAPROXEN
     Indication: PAIN
     Route: 048
     Dates: end: 20140829
  2. IBUPROFEN. [Suspect]
     Active Substance: IBUPROFEN
     Indication: PAIN
     Route: 048
     Dates: end: 20140829

REACTIONS (5)
  - Nausea [None]
  - Faeces discoloured [None]
  - Gastrointestinal mucosa hyperaemia [None]
  - Gastric mucosa erythema [None]
  - Vomiting [None]

NARRATIVE: CASE EVENT DATE: 20140828
